FAERS Safety Report 20902701 (Version 1)
Quarter: 2022Q2

REPORT INFORMATION
  Report Type: Spontaneous
  Country: IN (occurrence: IN)
  Receive Date: 20220601
  Receipt Date: 20220601
  Transmission Date: 20220720
  Serious: Yes (Other)
  Sender: FDA-Public Use
  Company Number: IN-BAYER-2022A076070

PATIENT
  Age: 31 Year
  Sex: Female

DRUGS (1)
  1. SORAFENIB [Suspect]
     Active Substance: SORAFENIB
     Indication: Desmoid tumour
     Dosage: UNK

REACTIONS (4)
  - Bladder neoplasm [None]
  - Hydronephrosis [None]
  - Off label use [None]
  - Drug effective for unapproved indication [None]
